FAERS Safety Report 4475899-3 (Version None)
Quarter: 2004Q4

REPORT INFORMATION
  Report Type: 
  Country: None (occurrence: None)
  Receive Date: 20041015
  Receipt Date: 20041005
  Transmission Date: 20050328
  Serious: Yes (Death)
  Sender: FDA-Public Use
  Company Number: US-AMGEN-US094472

PATIENT
  Sex: Male
  Weight: 84 kg

DRUGS (3)
  1. PROCRIT [Suspect]
     Indication: ANAEMIA OF MALIGNANT DISEASE
     Dates: start: 20030820
  2. NEUPOGEN [Concomitant]
  3. FRAGMIN [Concomitant]

REACTIONS (1)
  - DEATH [None]
